FAERS Safety Report 19308499 (Version 1)
Quarter: 2021Q2

REPORT INFORMATION
  Report Type: Spontaneous
  Country: US (occurrence: US)
  Receive Date: 20210526
  Receipt Date: 20210526
  Transmission Date: 20210717
  Serious: Yes (Other)
  Sender: FDA-Public Use
  Company Number: None

PATIENT
  Age: 27 Year
  Weight: 58.5 kg

DRUGS (1)
  1. MYLAN ESTRADIOL TRANSDERMAL PATCH [Suspect]
     Active Substance: ESTRADIOL
     Dosage: ?          QUANTITY:1 PATCH(ES);OTHER FREQUENCY:ONE PER WEEK;?
     Route: 062

REACTIONS (2)
  - Application site irritation [None]
  - Rash [None]

NARRATIVE: CASE EVENT DATE: 20210225
